FAERS Safety Report 8209185-2 (Version None)
Quarter: 2012Q1

REPORT INFORMATION
  Report Type: 
  Country: None (occurrence: None)
  Receive Date: 20120314
  Receipt Date: 20120305
  Transmission Date: 20120608
  Serious: Yes (Hospitalization)
  Sender: FDA-Public Use
  Company Number: US-BAYER-2011-038951

PATIENT
  Age: 34 Year
  Sex: Female
  Weight: 112.93 kg

DRUGS (8)
  1. YAZ [Suspect]
     Indication: CONTRACEPTION
     Dosage: UNK
     Dates: start: 20080317, end: 20090417
  2. PROAIR HFA [Concomitant]
     Indication: RESPIRATORY TRACT CONGESTION
     Dosage: 2 PUFF(S), PRN
     Route: 055
     Dates: start: 20090313
  3. EFFEXOR [Concomitant]
     Indication: ANXIETY
     Dosage: 75 MG, QD
     Route: 048
     Dates: start: 20070101
  4. PEPCID [Concomitant]
  5. YAZ [Suspect]
     Indication: PREMENSTRUAL SYNDROME
  6. TRICOR [Concomitant]
     Dosage: UNK
     Route: 048
     Dates: start: 20090313
  7. YAZ [Suspect]
     Indication: HEADACHE
  8. LEVAQUIN [Concomitant]
     Dosage: 750 MG, QD
     Route: 048
     Dates: start: 20090313

REACTIONS (3)
  - PULMONARY EMBOLISM [None]
  - INJURY [None]
  - PAIN [None]
